FAERS Safety Report 11604171 (Version 1)
Quarter: 2015Q4

REPORT INFORMATION
  Report Type: Spontaneous
  Country: US (occurrence: None)
  Receive Date: 20151006
  Receipt Date: 20151006
  Transmission Date: 20160304
  Serious: Yes (Disabling)
  Sender: FDA-Public Use
  Company Number: None

PATIENT
  Age: 63 Year
  Sex: Female
  Weight: 86.18 kg

DRUGS (22)
  1. ASPIRIN. [Concomitant]
     Active Substance: ASPIRIN
  2. PRILOSEC [Concomitant]
     Active Substance: OMEPRAZOLE MAGNESIUM
  3. MAGNESIUM [Concomitant]
     Active Substance: MAGNESIUM
  4. AMLODIPINE [Concomitant]
     Active Substance: AMLODIPINE BESYLATE
  5. CHONDROITIN [Concomitant]
     Active Substance: CHONDROITIN
  6. CALCIUM [Concomitant]
     Active Substance: CALCIUM
  7. VITAMIN E [Concomitant]
     Active Substance: .ALPHA.-TOCOPHEROL
  8. SYNTHROID [Concomitant]
     Active Substance: LEVOTHYROXINE SODIUM
  9. ASTEPRO [Concomitant]
     Active Substance: AZELASTINE HYDROCHLORIDE
  10. GLUCOSAMINE [Concomitant]
     Active Substance: GLUCOSAMINE
  11. CHROMIUM [Concomitant]
     Active Substance: CHROMIC CHLORIDE\CHROMIUM
  12. BACLOFEN. [Concomitant]
     Active Substance: BACLOFEN
  13. NEURONTIN [Concomitant]
     Active Substance: GABAPENTIN
  14. SIMVASTATIN. [Concomitant]
     Active Substance: SIMVASTATIN
  15. XOPENEX [Concomitant]
     Active Substance: LEVALBUTEROL HYDROCHLORIDE
  16. ZANAFLEX [Concomitant]
     Active Substance: TIZANIDINE HYDROCHLORIDE
  17. ZYRTEC [Concomitant]
     Active Substance: CETIRIZINE HYDROCHLORIDE
  18. CEFDINIR. [Suspect]
     Active Substance: CEFDINIR
     Indication: LOWER RESPIRATORY TRACT CONGESTION
     Route: 048
     Dates: start: 20150910, end: 20150916
  19. CEFDINIR. [Suspect]
     Active Substance: CEFDINIR
     Indication: MALAISE
     Route: 048
     Dates: start: 20150910, end: 20150916
  20. DULERA [Concomitant]
     Active Substance: FORMOTEROL FUMARATE DIHYDRATE\MOMETASONE FUROATE
  21. VITAMIN D3 [Concomitant]
     Active Substance: CHOLECALCIFEROL
  22. CINNAMON. [Concomitant]
     Active Substance: CINNAMON

REACTIONS (14)
  - Cough [None]
  - Dysphonia [None]
  - Headache [None]
  - Malaise [None]
  - Pruritus [None]
  - Gingival swelling [None]
  - Nasal discomfort [None]
  - Oropharyngeal pain [None]
  - Rash [None]
  - Documented hypersensitivity to administered product [None]
  - Blister [None]
  - Feeling abnormal [None]
  - Epistaxis [None]
  - Oral pain [None]

NARRATIVE: CASE EVENT DATE: 20150913
